FAERS Safety Report 15044068 (Version 4)
Quarter: 2018Q3

REPORT INFORMATION
  Report Type: Report from Study
  Country: AR (occurrence: AR)
  Receive Date: 20180621
  Receipt Date: 20180723
  Transmission Date: 20181010
  Serious: Yes (Other)
  Sender: FDA-Public Use
  Company Number: AR-ALLERGAN-1831400US

PATIENT
  Age: 54 Year
  Sex: Male
  Weight: 86 kg

DRUGS (5)
  1. METFORMIN [Concomitant]
     Active Substance: METFORMIN HYDROCHLORIDE
     Indication: DIABETES MELLITUS
     Dosage: 850 UNK, BID
     Route: 048
  2. BIMATOPROST 0.015 MG INS (11048X) [Suspect]
     Active Substance: BIMATOPROST
     Dosage: 15 ?G, SINGLE
     Route: 031
     Dates: start: 20170316, end: 20170316
  3. BIMATOPROST 0.015 MG INS (11048X) [Suspect]
     Active Substance: BIMATOPROST
     Indication: PRODUCT USED FOR UNKNOWN INDICATION
     Dosage: 15 ?G, SINGLE
     Route: 031
     Dates: start: 20171108, end: 20171108
  4. ACETYLSALICYLIC ACID [Concomitant]
     Active Substance: ASPIRIN
     Indication: ANTIPLATELET THERAPY
     Dosage: 100 UNK, QD
     Route: 048
  5. FENOFIBRIC ACID. [Concomitant]
     Active Substance: FENOFIBRIC ACID
     Indication: HYPERTRIGLYCERIDAEMIA
     Dosage: 135 UNK, QD
     Route: 048

REACTIONS (2)
  - Corneal endothelial cell loss [Not Recovered/Not Resolved]
  - Macular oedema [Recovered/Resolved]

NARRATIVE: CASE EVENT DATE: 20180614
